FAERS Safety Report 18533374 (Version 1)
Quarter: 2020Q4

REPORT INFORMATION
  Report Type: Spontaneous
  Country: US (occurrence: US)
  Receive Date: 20201120
  Receipt Date: 20201120
  Transmission Date: 20210114
  Serious: Yes (Hospitalization, Disabling, Other)
  Sender: FDA-Public Use
  Company Number: None

PATIENT
  Age: 74 Year
  Sex: Female
  Weight: 88.2 kg

DRUGS (8)
  1. METFORMIN [Concomitant]
     Active Substance: METFORMIN HYDROCHLORIDE
  2. GLYBURIDE. [Concomitant]
     Active Substance: GLYBURIDE
  3. ALEVE [Concomitant]
     Active Substance: NAPROXEN SODIUM
  4. ASPIRIN 81MG [Concomitant]
     Active Substance: ASPIRIN
  5. RYBELSUS [Suspect]
     Active Substance: SEMAGLUTIDE
     Indication: DIABETES MELLITUS
     Route: 048
     Dates: start: 20200920, end: 20201020
  6. ONE-A-DAY NOS [Concomitant]
     Active Substance: MINERALS\VITAMINS
  7. VITAMIN C [Concomitant]
     Active Substance: ASCORBIC ACID
  8. VITAMIN D [Concomitant]
     Active Substance: VITAMIN D NOS

REACTIONS (2)
  - Diabetic ketoacidosis [None]
  - Amputation [None]

NARRATIVE: CASE EVENT DATE: 20201028
